FAERS Safety Report 8435439-0 (Version None)
Quarter: 2012Q2

REPORT INFORMATION
  Report Type: 
  Country: None (occurrence: None)
  Receive Date: 20120608
  Receipt Date: 20120328
  Transmission Date: 20120825
  Serious: Yes (Other)
  Sender: FDA-Public Use
  Company Number: DSA_57674_2012

PATIENT

DRUGS (5)
  1. LEUCOVORIN CALCIUM [Suspect]
     Indication: COLORECTAL CANCER
     Dosage: (200 MG/M2 OVER 2 HOURS, EVERY OTHER WEEK, FOR UNKNOWN)
  2. OXALIPLATIN [Suspect]
     Indication: COLORECTAL CANCER
     Dosage: (85 MG/M2 OVER 2 HOURS, EVERY OTHER WEEK, FOR UNKNOWN)
  3. DEXTROSE [Concomitant]
  4. FLUOROURACIL [Suspect]
     Indication: COLORECTAL CANCER
     Dosage: (2400 MG/M2 OVER 48 HOURS, EVERY OTHER WEEK, FOR UNKNOWN)
  5. IRINOTECAN HCL [Suspect]
     Indication: COLORECTAL CANCER
     Dosage: (165 MG/M2 OVER 60 MIN, EVERY OTHER WEEK, FOR UNKNOWN)

REACTIONS (1)
  - INFECTION [None]
